FAERS Safety Report 12681835 (Version 2)
Quarter: 2017Q2

REPORT INFORMATION
  Report Type: Spontaneous
  Country: US (occurrence: US)
  Receive Date: 20160824
  Receipt Date: 20170410
  Transmission Date: 20170830
  Serious: Yes (Death, Hospitalization, Other)
  Sender: FDA-Public Use
  Company Number: US-BRISTOL-MYERS SQUIBB COMPANY-BMS-2016-067226

PATIENT
  Age: 72 Year
  Sex: Female

DRUGS (2)
  1. MYCOPHENOLATE MOFETIL. [Concomitant]
     Active Substance: MYCOPHENOLATE MOFETIL
     Indication: RENAL TRANSPLANT
     Dosage: 1000 MG, BID
     Route: 065
     Dates: start: 20140204, end: 20160805
  2. BELATACEPT [Suspect]
     Active Substance: BELATACEPT
     Indication: RENAL TRANSPLANT
     Dosage: 300 MG, QCYCLE
     Route: 042
     Dates: start: 20140515, end: 20160713

REACTIONS (2)
  - Off label use [Unknown]
  - Central nervous system lymphoma [Fatal]

NARRATIVE: CASE EVENT DATE: 20160808
